FAERS Safety Report 19254071 (Version 1)
Quarter: 2021Q2

REPORT INFORMATION
  Report Type: Spontaneous
  Country: US (occurrence: US)
  Receive Date: 20210513
  Receipt Date: 20210513
  Transmission Date: 20210717
  Serious: No
  Sender: FDA-Public Use
  Company Number: US-SA-2021SA156900

PATIENT
  Age: 73 Year
  Sex: Male

DRUGS (1)
  1. DUPIXENT [Suspect]
     Active Substance: DUPILUMAB
     Indication: BRONCHIECTASIS
     Dosage: 300MG/2ML, QOW
     Route: 058
     Dates: start: 201904

REACTIONS (3)
  - Pain [Unknown]
  - Product use in unapproved indication [Unknown]
  - Flushing [Unknown]

NARRATIVE: CASE EVENT DATE: 201904
